FAERS Safety Report 7608052-2 (Version None)
Quarter: 2011Q3

REPORT INFORMATION
  Report Type: 
  Country: None (occurrence: None)
  Receive Date: 20110714
  Receipt Date: 20110706
  Transmission Date: 20111222
  Serious: No
  Sender: FDA-Public Use
  Company Number: US-JNJFOC-20110409832

PATIENT
  Sex: Male
  Weight: 68.95 kg

DRUGS (2)
  1. STELARA [Suspect]
     Route: 058
     Dates: start: 20110223
  2. STELARA [Suspect]
     Indication: PSORIASIS
     Route: 058
     Dates: start: 20110324

REACTIONS (1)
  - DERMATITIS [None]
